FAERS Safety Report 6960158-7 (Version None)
Quarter: 2010Q3

REPORT INFORMATION
  Report Type: 
  Country: None (occurrence: None)
  Receive Date: 20100901
  Receipt Date: 20100830
  Transmission Date: 20110219
  Serious: Yes (Hospitalization)
  Sender: FDA-Public Use
  Company Number: ES-ROXANE LABORATORIES, INC.-2010-RO-01159RO

PATIENT
  Age: 47 Year
  Sex: Male

DRUGS (6)
  1. METHADONE HCL [Suspect]
     Indication: DRUG ABUSER
  2. TENOFOVIR [Suspect]
     Indication: ANTIRETROVIRAL THERAPY
     Dosage: 300 MG
  3. EMTRACITABINE [Suspect]
     Indication: ANTIRETROVIRAL THERAPY
     Dosage: 200 MG
  4. LOPINAVIR AND RITONAVIR [Suspect]
     Indication: ANTIRETROVIRAL THERAPY
  5. HEROIN [Suspect]
  6. COCAINE [Suspect]

REACTIONS (2)
  - CELLULITIS [None]
  - NOCARDIA TEST POSITIVE [None]
